FAERS Safety Report 21712135 (Version 1)
Quarter: 2022Q4

REPORT INFORMATION
  Report Type: Spontaneous
  Country: US (occurrence: US)
  Receive Date: 20221212
  Receipt Date: 20221212
  Transmission Date: 20230113
  Serious: No
  Sender: FDA-Public Use
  Company Number: US-ORG100016242-2022002894

PATIENT
  Age: 75 Year
  Sex: Female
  Weight: 54 kg

DRUGS (2)
  1. EXPAREL [Suspect]
     Active Substance: BUPIVACAINE
     Indication: Arthroscopy
     Dates: start: 20221012
  2. ROPIVACAINE [Concomitant]
     Active Substance: ROPIVACAINE
     Indication: Arthroscopy
     Dates: start: 20221012

REACTIONS (3)
  - No adverse event [Unknown]
  - Therapeutic product effect decreased [Unknown]
  - Labelled drug-drug interaction medication error [Recovered/Resolved]

NARRATIVE: CASE EVENT DATE: 20221012
